FAERS Safety Report 5403028-8 (Version None)
Quarter: 2007Q3

REPORT INFORMATION
  Report Type: 
  Country: None (occurrence: None)
  Receive Date: 20070713
  Receipt Date: 20070208
  Transmission Date: 20080115
  Serious: Yes (Other)
  Sender: FDA-Public Use
  Company Number: 481826

PATIENT
  Age: 54 Year
  Sex: Female
  Weight: 54.9 kg

DRUGS (1)
  1. BONIVA [Suspect]
     Indication: DRUG USE FOR UNKNOWN INDICATION
     Dosage: 1 PER MONTH ORAL
     Route: 048
     Dates: start: 20070205, end: 20070205

REACTIONS (4)
  - DIZZINESS [None]
  - INFLUENZA [None]
  - INFLUENZA LIKE ILLNESS [None]
  - PRESYNCOPE [None]
